FAERS Safety Report 4308284-5 (Version None)
Quarter: 2004Q1

REPORT INFORMATION
  Report Type: 
  Country: None (occurrence: None)
  Receive Date: 20040301
  Receipt Date: 20031105
  Transmission Date: 20041129
  Serious: No
  Sender: FDA-Public Use
  Company Number: US-BRISTOL-MYERS SQUIBB COMPANY-12428124

PATIENT
  Age: 72 Year
  Sex: Female
  Weight: 61 kg

DRUGS (4)
  1. GLUCOPHAGE [Suspect]
     Indication: DIABETES MELLITUS
     Dosage: STARTED ON 500MG 2 PER DAY, INCREASED IN FEB-2003 TO 1000MG
     Route: 048
  2. PRANDIN [Concomitant]
  3. FOSAMAX [Concomitant]
  4. ASPIRIN [Concomitant]

REACTIONS (4)
  - DRY MOUTH [None]
  - GLOSSODYNIA [None]
  - HYPOAESTHESIA ORAL [None]
  - HYPOGLYCAEMIA [None]
